FAERS Safety Report 4821444-X (Version None)
Quarter: 2005Q4

REPORT INFORMATION
  Report Type: 
  Country: None (occurrence: None)
  Receive Date: 20051103
  Receipt Date: 20051019
  Transmission Date: 20060501
  Serious: Yes (Hospitalization, Other)
  Sender: FDA-Public Use
  Company Number: US_0409105404

PATIENT
  Age: 30 Year
  Sex: Male
  Weight: 93 kg

DRUGS (17)
  1. ZYPREXA [Suspect]
     Indication: SCHIZOPHRENIA, PARANOID TYPE
     Dosage: 20 MG /1 AT BEDTIME
     Dates: start: 19980529, end: 20050201
  2. HUMULIN N [Suspect]
     Indication: DIABETES MELLITUS
     Dosage: 50 U DAY
     Dates: start: 19981001
  3. HUMULIN R [Suspect]
     Indication: DIABETES MELLITUS
     Dosage: 25 U DAY
     Dates: start: 19981001
  4. ISONIAZID [Concomitant]
  5. PAROXETINE HCL [Concomitant]
  6. IBUPROFEN [Concomitant]
  7. AMOXICILLIN [Concomitant]
  8. VITAMIN B6 [Concomitant]
  9. NICODERM [Concomitant]
  10. LOTRISONE [Concomitant]
  11. WELLBUTRIN [Concomitant]
  12. BENZTROPNE [Concomitant]
  13. TRAZODONE HCL [Concomitant]
  14. RISPERDAL [Concomitant]
  15. TRILAFON (PERPHENAZINE ENANTATE) [Concomitant]
  16. ATIVAN [Concomitant]
  17. COLACE (DOCUSATE SODIUM) [Concomitant]

REACTIONS (69)
  - ABDOMINAL HERNIA [None]
  - ABDOMINAL PAIN UPPER [None]
  - ANION GAP INCREASED [None]
  - ANXIETY [None]
  - ASTHENIA [None]
  - BACK PAIN [None]
  - BLEPHAROSPASM [None]
  - BLOOD CHLORIDE DECREASED [None]
  - BLOOD OSMOLARITY INCREASED [None]
  - BLOOD PH DECREASED [None]
  - BLOOD SODIUM DECREASED [None]
  - BREATHING-RELATED SLEEP DISORDER [None]
  - CARBON DIOXIDE DECREASED [None]
  - CARPAL TUNNEL SYNDROME [None]
  - CHOKING SENSATION [None]
  - CHROMATURIA [None]
  - CONDITION AGGRAVATED [None]
  - CONFUSIONAL STATE [None]
  - CONSTIPATION [None]
  - COUGH [None]
  - DEHYDRATION [None]
  - DIABETES MELLITUS [None]
  - DIABETIC KETOACIDOSIS [None]
  - DIARRHOEA [None]
  - DISTURBANCE IN ATTENTION [None]
  - DRY SKIN [None]
  - DYSLIPIDAEMIA [None]
  - DYSPNOEA [None]
  - EMOTIONAL DISTRESS [None]
  - EYE PAIN [None]
  - FATIGUE [None]
  - FLATULENCE [None]
  - HAEMOGLOBIN URINE PRESENT [None]
  - HEADACHE [None]
  - HEPATOMEGALY [None]
  - HIGH DENSITY LIPOPROTEIN DECREASED [None]
  - HYPOAESTHESIA [None]
  - HYPOGLYCAEMIA [None]
  - JOINT STIFFNESS [None]
  - LOSS OF CONSCIOUSNESS [None]
  - MALARIA [None]
  - MUSCLE STRAIN [None]
  - MUSCULOSKELETAL STIFFNESS [None]
  - NASAL CONGESTION [None]
  - NAUSEA [None]
  - NECK PAIN [None]
  - NERVE ROOT COMPRESSION [None]
  - PAIN [None]
  - PARANOIA [None]
  - PHARYNGOLARYNGEAL PAIN [None]
  - POOR PERIPHERAL CIRCULATION [None]
  - PRURITUS [None]
  - PSYCHOTIC DISORDER [None]
  - RENAL FAILURE CHRONIC [None]
  - RETICULOCYTE COUNT INCREASED [None]
  - ROAD TRAFFIC ACCIDENT [None]
  - SENSORY DISTURBANCE [None]
  - SINUSITIS [None]
  - SOMNOLENCE [None]
  - SUICIDAL IDEATION [None]
  - TESTICULAR PAIN [None]
  - THINKING ABNORMAL [None]
  - TINEA PEDIS [None]
  - TONGUE ULCERATION [None]
  - TREATMENT NONCOMPLIANCE [None]
  - TUBERCULOSIS [None]
  - VISION BLURRED [None]
  - WEIGHT DECREASED [None]
  - WEIGHT INCREASED [None]
